FAERS Safety Report 5925126-2 (Version None)
Quarter: 2008Q4

REPORT INFORMATION
  Report Type: 
  Country: None (occurrence: None)
  Receive Date: 20081021
  Receipt Date: 20081014
  Transmission Date: 20090506
  Serious: Yes (Hospitalization)
  Sender: FDA-Public Use
  Company Number: ES-AVENTIS-200815586EU

PATIENT
  Age: 81 Year
  Sex: Male

DRUGS (6)
  1. SEGURIL                            /00032601/ [Suspect]
     Route: 048
  2. DIGOXIN [Suspect]
     Route: 048
     Dates: end: 20080416
  3. ASPIRIN [Suspect]
     Indication: ACUTE MYOCARDIAL INFARCTION
     Route: 048
  4. NEOBRUFEN [Suspect]
     Route: 048
     Dates: start: 20080316, end: 20080416
  5. ENALAPRIL MALEATE [Concomitant]
     Route: 048
  6. EMCONCOR                           /00802601/ [Concomitant]
     Route: 048

REACTIONS (3)
  - DRUG INTERACTION [None]
  - RENAL FAILURE ACUTE [None]
  - THERAPEUTIC AGENT TOXICITY [None]
